FAERS Safety Report 23919491 (Version 1)
Quarter: 2024Q2

REPORT INFORMATION
  Report Type: Spontaneous
  Country: US (occurrence: None)
  Receive Date: 20240529
  Receipt Date: 20240529
  Transmission Date: 20240716
  Serious: Yes (Life-Threatening, Hospitalization, Disabling, Other)
  Sender: FDA-Public Use
  Company Number: None

PATIENT
  Age: 56 Year
  Sex: Female
  Weight: 72 kg

DRUGS (8)
  1. LEVAQUIN [Suspect]
     Active Substance: LEVOFLOXACIN
     Indication: Sinusitis
  2. CIPRO [Suspect]
     Active Substance: CIPROFLOXACIN\CIPROFLOXACIN HYDROCHLORIDE
  3. levathyroxine [Concomitant]
  4. LORAZEPAM [Concomitant]
     Active Substance: LORAZEPAM
  5. VITAMIN B [Concomitant]
     Active Substance: VITAMIN B
  6. certirizine allergy [Concomitant]
  7. ATORVASTATIN [Concomitant]
     Active Substance: ATORVASTATIN
  8. CANNABIS SATIVA SUBSP. INDICA TOP [Concomitant]
     Active Substance: CANNABIS SATIVA SUBSP. INDICA TOP

REACTIONS (13)
  - Unevaluable event [None]
  - Fibromyalgia [None]
  - Brain fog [None]
  - Graves^ disease [None]
  - Tendon pain [None]
  - Appendix disorder [None]
  - Neuropathy peripheral [None]
  - Surgery [None]
  - Hip arthroplasty [None]
  - T-cell lymphocytosis [None]
  - Gastrointestinal disorder [None]
  - Irritable bowel syndrome [None]
  - Mitochondrial toxicity [None]

NARRATIVE: CASE EVENT DATE: 20041128
